FAERS Safety Report 19117846 (Version 1)
Quarter: 2021Q2

REPORT INFORMATION
  Report Type: Report from Study
  Country: CN (occurrence: CN)
  Receive Date: 20210409
  Receipt Date: 20210409
  Transmission Date: 20210717
  Serious: Yes (Life-Threatening, Hospitalization, Other)
  Sender: FDA-Public Use
  Company Number: CN-ASTRAZENECA-2020SF59021

PATIENT
  Age: 28198 Day
  Sex: Male

DRUGS (45)
  1. DICLOFENAC SODIUM SUSTAINED RELEASE CAPSULES [Concomitant]
     Indication: GOUT
     Dosage: 50.0MG INTERMITTENT
     Route: 048
     Dates: start: 2017, end: 20201214
  2. LANSOPRAZOLE FOR INJECTION [Concomitant]
     Indication: PROPHYLAXIS
     Route: 042
     Dates: start: 20201112, end: 20201114
  3. CELECOXIB. [Concomitant]
     Active Substance: CELECOXIB
     Indication: BACK PAIN
     Route: 048
     Dates: start: 20201113, end: 20210329
  4. INDAPAMIDE TABLETS [Concomitant]
     Active Substance: INDAPAMIDE
     Indication: HYPERTENSION
     Route: 048
     Dates: start: 2018, end: 20201202
  5. FEBUXOSTAT TABLETS [Concomitant]
     Active Substance: FEBUXOSTAT
     Indication: HYPERURICAEMIA
     Route: 048
     Dates: start: 20201112, end: 20201213
  6. PALONOSETRON HYDROCHLORIDE INJECTION [Concomitant]
     Active Substance: PALONOSETRON HYDROCHLORIDE
     Indication: PROPHYLAXIS OF NAUSEA AND VOMITING
     Dosage: 0.25MG ONCE/SINGLE ADMINISTRATION
     Route: 042
     Dates: start: 20201113, end: 20201113
  7. FUROSEMIDE INJECTION [Concomitant]
     Active Substance: FUROSEMIDE
     Indication: URINARY TRACT DISORDER
     Dosage: 10.0MG ONCE/SINGLE ADMINISTRATION
     Route: 042
     Dates: start: 20201113, end: 20201113
  8. FUROSEMIDE INJECTION [Concomitant]
     Active Substance: FUROSEMIDE
     Indication: URINARY TRACT DISORDER
     Dosage: 10.0MG ONCE/SINGLE ADMINISTRATION
     Route: 042
     Dates: start: 20201120, end: 20201120
  9. RECOMBINANT HUMAN ERYTHROPOIETIN INJECTION [Concomitant]
     Active Substance: ERYTHROPOIETIN
     Indication: ANAEMIA
     Dosage: 10000 ONCE/SINGLE ADMINISTRATION
     Route: 058
     Dates: start: 20201121, end: 20201121
  10. FLURBIPROFEN CATAPLASMS [Concomitant]
     Indication: BACK PAIN
     Route: 050
     Dates: start: 20201113, end: 20201220
  11. OMEPRAZOLE ENTERIC?COATED CAPSULES [Concomitant]
     Indication: PROPHYLAXIS
     Route: 048
     Dates: start: 20201113, end: 20210329
  12. FEBUXOSTAT TABLETS [Concomitant]
     Active Substance: FEBUXOSTAT
     Indication: HYPERURICAEMIA
     Route: 048
     Dates: start: 20201112, end: 20201213
  13. SODIUM POTASSIUM MAGNESIUM CALCIUN AND GLUCOSE INJECTION [Concomitant]
     Indication: DEHYDRATION
     Dosage: 500.0ML ONCE/SINGLE ADMINISTRATION
     Route: 042
     Dates: start: 20201120, end: 20201120
  14. LEUCOGEN TABLETS [Concomitant]
     Indication: WHITE BLOOD CELL COUNT DECREASED
     Dosage: 20.0MG ONCE/SINGLE ADMINISTRATION
     Route: 048
     Dates: start: 20201114, end: 20201118
  15. RECOMBINANT HUMAN GRANULOCYTE COLONY?STIMULATING FACTOR FOR INJECTION [Concomitant]
     Indication: WHITE BLOOD CELL COUNT DECREASED
     Dosage: 150.0UG/INHAL ONCE/SINGLE ADMINISTRATION
     Route: 042
     Dates: start: 20201114, end: 20201114
  16. RECOMBINANT HUMAN ERYTHROPOIETIN INJECTION [Concomitant]
     Active Substance: ERYTHROPOIETIN
     Indication: ANAEMIA
     Dosage: 10000 ONCE/SINGLE ADMINISTRATION
     Route: 058
     Dates: start: 20201114, end: 20201114
  17. RECOMBINANT HUMAN GRANULOCYTE COLONY?STIMULATING FACTOR INJECTION [Concomitant]
     Indication: WHITE BLOOD CELL COUNT DECREASED
     Dosage: 300.0UG/INHAL ONCE/SINGLE ADMINISTRATION
     Route: 058
     Dates: start: 20201127, end: 20201127
  18. GEMCITABINE. [Suspect]
     Active Substance: GEMCITABINE
     Indication: TRANSITIONAL CELL CARCINOMA
     Dosage: 1000 MG/M2 EVERY THREE WEEKS
     Route: 042
     Dates: start: 20201113, end: 20201113
  19. GEMCITABINE. [Suspect]
     Active Substance: GEMCITABINE
     Indication: TRANSITIONAL CELL CARCINOMA
     Dosage: 1000 MG/M2 EVERY THREE WEEKS
     Route: 042
     Dates: start: 20201120, end: 20201120
  20. REDUCED GLUTATHIONE FOR INJECTION [Concomitant]
     Indication: PROPHYLAXIS
     Route: 042
     Dates: start: 20201120, end: 20201121
  21. DEXAMETHASONE SODIUM PHOSPHATE INJECTION [Concomitant]
     Active Substance: DEXAMETHASONE SODIUM PHOSPHATE
     Indication: CHEMOTHERAPY
     Dosage: 10.0MG ONCE/SINGLE ADMINISTRATION
     Route: 042
     Dates: start: 20201120, end: 20201120
  22. FUROSEMIDE INJECTION [Concomitant]
     Active Substance: FUROSEMIDE
     Indication: POLYURIA
     Dosage: 10.0MG ONCE/SINGLE ADMINISTRATION
     Route: 042
     Dates: start: 20201113, end: 20201113
  23. LEUCOGEN TABLETS [Concomitant]
     Indication: PLATELET COUNT DECREASED
     Dosage: 20.0MG ONCE/SINGLE ADMINISTRATION
     Route: 048
     Dates: start: 20201114, end: 20201118
  24. RECOMBINANT HUMAN ERYTHROPOIETIN INJECTION [Concomitant]
     Active Substance: ERYTHROPOIETIN
     Indication: ANAEMIA
     Dosage: 10000 ONCE/SINGLE ADMINISTRATION
     Route: 058
     Dates: start: 20201127, end: 20201127
  25. PAMIDRONATE DISODIUM FOR INJECTION [Concomitant]
     Active Substance: PAMIDRONATE DISODIUM
     Indication: BONE CANCER METASTATIC
     Dosage: 90.0MG ONCE/SINGLE ADMINISTRATION
     Route: 042
     Dates: start: 20201112, end: 20201112
  26. TAMSULOSIN HYDROCHLORIDE SUSTAINED RELEASE CAPSULES [Concomitant]
     Indication: BENIGN PROSTATIC HYPERPLASIA
     Route: 048
     Dates: start: 20201112, end: 20210329
  27. DEXAMETHASONE SODIUM PHOSPHATE INJECTION [Concomitant]
     Active Substance: DEXAMETHASONE SODIUM PHOSPHATE
     Indication: CHEMOTHERAPY
     Dosage: 10.0MG ONCE/SINGLE ADMINISTRATION
     Route: 042
     Dates: start: 20201113, end: 20201113
  28. FUROSEMIDE INJECTION [Concomitant]
     Active Substance: FUROSEMIDE
     Indication: POLYURIA
     Dosage: 10.0MG ONCE/SINGLE ADMINISTRATION
     Route: 042
     Dates: start: 20201120, end: 20201120
  29. LIDOCAINE HYDROCHLORIDE INJECTION [Concomitant]
     Active Substance: LIDOCAINE HYDROCHLORIDE
     Indication: ANAESTHESIA
     Dosage: 0.2G ONCE/SINGLE ADMINISTRATION
     Route: 050
     Dates: start: 20201113, end: 20201113
  30. CARBOPLATIN. [Suspect]
     Active Substance: CARBOPLATIN
     Indication: TRANSITIONAL CELL CARCINOMA
     Dosage: EVERY THREE WEEKS
     Route: 042
     Dates: start: 20201113, end: 20201113
  31. LANSOPRAZOLE FOR INJECTION [Concomitant]
     Indication: PROPHYLAXIS
     Dosage: 30.0MG ONCE/SINGLE ADMINISTRATION
     Route: 042
     Dates: start: 20201113, end: 20201113
  32. LANSOPRAZOLE FOR INJECTION [Concomitant]
     Indication: PROPHYLAXIS
     Dosage: 30.0MG ONCE/SINGLE ADMINISTRATION
     Route: 042
     Dates: start: 20201120, end: 20201121
  33. LEUCOGEN TABLETS [Concomitant]
     Indication: WHITE BLOOD CELL COUNT DECREASED
     Dosage: 20.0MG ONCE/SINGLE ADMINISTRATION
     Route: 048
     Dates: start: 20201119, end: 20201204
  34. TREMELIMUMAB. [Suspect]
     Active Substance: TREMELIMUMAB
     Indication: TRANSITIONAL CELL CARCINOMA
     Route: 042
     Dates: start: 20201113, end: 20201113
  35. CANDESARTAN CILEXETIL TABLETS [Concomitant]
     Active Substance: CANDESARTAN CILEXETIL
     Indication: HYPERTENSION
     Route: 048
     Dates: start: 2000, end: 20201202
  36. REDUCED GLUTATHIONE FOR INJECTION [Concomitant]
     Indication: PROPHYLAXIS
     Route: 042
     Dates: start: 20201112, end: 20201114
  37. SODIUM POTASSIUM MAGNESIUM CALCIUN AND GLUCOSE INJECTION [Concomitant]
     Indication: DEHYDRATION
     Dosage: 500.0ML ONCE/SINGLE ADMINISTRATION
     Route: 042
     Dates: start: 20201113, end: 20201113
  38. LEUCOGEN TABLETS [Concomitant]
     Indication: PLATELET COUNT DECREASED
     Dosage: 20.0MG ONCE/SINGLE ADMINISTRATION
     Route: 048
     Dates: start: 20201113, end: 20201113
  39. RECOMBINANT HUMAN INTERLEUKIN?11 FOR INJECTION [Concomitant]
     Indication: PLATELET COUNT DECREASED
     Dosage: 1.5MG ONCE/SINGLE ADMINISTRATION
     Route: 058
     Dates: start: 20201114, end: 20201114
  40. DURVALUMAB. [Suspect]
     Active Substance: DURVALUMAB
     Indication: TRANSITIONAL CELL CARCINOMA
     Route: 042
     Dates: start: 20201113, end: 20201113
  41. CEFMINOX SODIUM FOR INJECTION [Concomitant]
     Active Substance: CEFMINOX SODIUM
     Indication: DEVICE RELATED INFECTION
     Route: 042
     Dates: start: 20201113, end: 20201114
  42. PALONOSETRON HYDROCHLORIDE INJECTION [Concomitant]
     Active Substance: PALONOSETRON HYDROCHLORIDE
     Indication: PROPHYLAXIS OF NAUSEA AND VOMITING
     Dosage: 0.25MG ONCE/SINGLE ADMINISTRATION
     Route: 042
     Dates: start: 20201120, end: 20201120
  43. LEUCOGEN TABLETS [Concomitant]
     Indication: WHITE BLOOD CELL COUNT DECREASED
     Dosage: 20.0MG ONCE/SINGLE ADMINISTRATION
     Route: 048
     Dates: start: 20201113, end: 20201113
  44. LEUCOGEN TABLETS [Concomitant]
     Indication: PLATELET COUNT DECREASED
     Dosage: 20.0MG ONCE/SINGLE ADMINISTRATION
     Route: 048
     Dates: start: 20201119, end: 20201204
  45. RECOMBINANT HUMAN GRANULOCYTE COLONY?STIMULATING FACTOR FOR INJECTION [Concomitant]
     Indication: WHITE BLOOD CELL COUNT DECREASED
     Dosage: 150.0UG/INHAL ONCE/SINGLE ADMINISTRATION
     Route: 058
     Dates: start: 20201120, end: 20201120

REACTIONS (1)
  - Platelet count decreased [Recovered/Resolved]

NARRATIVE: CASE EVENT DATE: 20201127
